FAERS Safety Report 19494852 (Version 3)
Quarter: 2021Q3

REPORT INFORMATION
  Report Type: Spontaneous
  Country: IT (occurrence: IT)
  Receive Date: 20210705
  Receipt Date: 20210709
  Transmission Date: 20211014
  Serious: No
  Sender: FDA-Public Use
  Company Number: IT-SA-2021SA219683

PATIENT
  Age: 93 Year
  Sex: Male

DRUGS (19)
  1. DUTASTERIDE. [Concomitant]
     Active Substance: DUTASTERIDE
  2. RAMIPRIL. [Concomitant]
     Active Substance: RAMIPRIL
  3. VILDAGLIPTIN [Concomitant]
     Active Substance: VILDAGLIPTIN
  4. AZITHROMYCIN ANHYDROUS. [Concomitant]
     Active Substance: AZITHROMYCIN ANHYDROUS
     Dosage: 500 MG (FOR THE FIRST DAY)
     Dates: start: 2020, end: 2020
  5. CEFTRIAXON [Concomitant]
     Active Substance: CEFTRIAXONE
  6. LOPINAVIR/RITONAVIR [Interacting]
     Active Substance: LOPINAVIR\RITONAVIR
     Indication: COVID-19
     Dosage: 400/100 MG FOR 7?14 DAYS FREQUENCY REPORTED AS : DRUG_INTERVAL_DOSAGE_UNIT_NUMBER : 0.5
     Dates: start: 2020, end: 2020
  7. METFORMIN HYDROCHLORIDE. [Concomitant]
     Active Substance: METFORMIN HYDROCHLORIDE
  8. INSULIN [Concomitant]
     Active Substance: INSULIN NOS
  9. GLICLAZIDE [Concomitant]
     Active Substance: GLICLAZIDE
  10. ENOXAPARIN SODIUM. [Concomitant]
     Active Substance: ENOXAPARIN SODIUM
  11. TAMSULOSIN HYDROCHLORIDE. [Suspect]
     Active Substance: TAMSULOSIN HYDROCHLORIDE
     Indication: PRODUCT USED FOR UNKNOWN INDICATION
  12. SIMVASTATIN. [Concomitant]
     Active Substance: SIMVASTATIN
  13. PERINDOPRIL [Concomitant]
     Active Substance: PERINDOPRIL
  14. HYDROXYCHLOROQUINE [Concomitant]
     Active Substance: HYDROXYCHLOROQUINE
     Dosage: 800 MG, FOR THE FIRST DAY
     Dates: start: 2020, end: 2020
  15. BISOPROLOL [Concomitant]
     Active Substance: BISOPROLOL
  16. AZITHROMYCIN ANHYDROUS. [Concomitant]
     Active Substance: AZITHROMYCIN ANHYDROUS
     Dosage: 250 MG, ONCE DAILY FOR 3?4 DAYS
     Dates: start: 2020, end: 2020
  17. BARNIDIPINE [Concomitant]
     Active Substance: BARNIDIPINE
  18. HYDROXYCHLOROQUINE [Concomitant]
     Active Substance: HYDROXYCHLOROQUINE
     Dosage: 400 MG, ONCE DAILY FOR 5?7 DAYS
     Dates: start: 2020, end: 2020
  19. FUROSEMIDE. [Concomitant]
     Active Substance: FUROSEMIDE

REACTIONS (2)
  - Drug interaction [Unknown]
  - Drug level increased [Unknown]

NARRATIVE: CASE EVENT DATE: 2020
